FAERS Safety Report 6187317-8 (Version None)
Quarter: 2009Q2

REPORT INFORMATION
  Report Type: 
  Country: None (occurrence: None)
  Receive Date: 20090508
  Receipt Date: 20090424
  Transmission Date: 20091009
  Serious: Yes (Hospitalization)
  Sender: FDA-Public Use
  Company Number: 232526K09USA

PATIENT
  Age: 65 Year
  Sex: Female
  Weight: 82 kg

DRUGS (7)
  1. REBIF [Suspect]
     Indication: MULTIPLE SCLEROSIS
     Dosage: 8.8 MCG, 3 IN 1 WEEKS, SUBCUTANEOUS, 22 MCG
     Route: 058
     Dates: start: 20090210, end: 20090101
  2. REBIF [Suspect]
     Indication: MULTIPLE SCLEROSIS
     Dosage: 8.8 MCG, 3 IN 1 WEEKS, SUBCUTANEOUS, 22 MCG
     Route: 058
     Dates: start: 20090101
  3. ATENOLOL [Concomitant]
  4. LEVOTHYROXINE SODIUM [Concomitant]
  5. AMANTADINE HCL [Concomitant]
  6. CARBAMAZEPINE [Concomitant]
  7. PEPTO BISMOL (BISMUTH SUBSALICYLATE) [Concomitant]

REACTIONS (1)
  - DEEP VEIN THROMBOSIS [None]
